FAERS Safety Report 5730933-5 (Version None)
Quarter: 2008Q2

REPORT INFORMATION
  Report Type: 
  Country: None (occurrence: None)
  Receive Date: 20080502
  Receipt Date: 20080428
  Transmission Date: 20081010
  Serious: Yes (Other)
  Sender: FDA-Public Use
  Company Number: 2008BI002928

PATIENT
  Age: 50 Year
  Sex: Female
  Weight: 62.5964 kg

DRUGS (3)
  1. TYSABRI [Suspect]
     Indication: MULTIPLE SCLEROSIS
     Dosage: 300 MG;QM;IV
     Route: 042
     Dates: start: 20071128, end: 20071128
  2. SYNTHROID [Concomitant]
  3. TAMOXIFEN CITRATE [Concomitant]

REACTIONS (2)
  - ADVERSE DRUG REACTION [None]
  - AUTOIMMUNE HEPATITIS [None]
